FAERS Safety Report 9473532 (Version 1)
Quarter: 2013Q3

REPORT INFORMATION
  Report Type: Spontaneous
  Country: DE (occurrence: DE)
  Receive Date: 20130823
  Receipt Date: 20130823
  Transmission Date: 20140515
  Serious: Yes (Other)
  Sender: FDA-Public Use
  Company Number: DE-SANOFI-AVENTIS-2013SA082737

PATIENT
  Sex: Male

DRUGS (2)
  1. JEVTANA [Suspect]
     Indication: PROSTATE CANCER
     Route: 051
  2. TAXOTERE [Concomitant]
     Indication: PROSTATE CANCER
     Dosage: DOSE:20 MILLIGRAM(S)/MILLILITRE
     Route: 051

REACTIONS (1)
  - Anaphylactic shock [Recovered/Resolved]
